FAERS Safety Report 7331142-9 (Version None)
Quarter: 2011Q1

REPORT INFORMATION
  Report Type: 
  Country: None (occurrence: None)
  Receive Date: 20110304
  Receipt Date: 20110223
  Transmission Date: 20110831
  Serious: Yes (Hospitalization)
  Sender: FDA-Public Use
  Company Number: IT-BRISTOL-MYERS SQUIBB COMPANY-15583321

PATIENT
  Age: 55 Year
  Sex: Female

DRUGS (8)
  1. FEDRA [Concomitant]
     Dosage: 1 DF= .075 MG +.002 MG
     Route: 048
  2. EUTHYROX [Concomitant]
     Indication: HYPOTHYROIDISM
     Route: 048
  3. BYETTA [Suspect]
     Indication: DIABETES MELLITUS
     Dosage: 1.2 ML
     Route: 058
     Dates: start: 20060101, end: 20101207
  4. PARIET [Concomitant]
     Dosage: STRENGTH 20 MG
     Route: 048
  5. COAPROVEL [Concomitant]
     Indication: HYPERTENSION
     Dosage: 1 DF =150/12.5 MG
     Route: 048
  6. GLUCOPHAGE [Suspect]
     Indication: DIABETES MELLITUS
     Dosage: STRENGTH GLUCOPHAGE 1000 MG
     Route: 048
     Dates: start: 20060101, end: 20101207
  7. INDERAL [Concomitant]
     Dosage: STRENGTH 40 MG
     Route: 048
  8. EFFEXOR [Concomitant]
     Route: 048

REACTIONS (5)
  - HYPERKALAEMIA [None]
  - RENAL FAILURE [None]
  - VOMITING [None]
  - DIARRHOEA [None]
  - LACTIC ACIDOSIS [None]
